FAERS Safety Report 22114096 (Version 1)
Quarter: 2023Q1

REPORT INFORMATION
  Report Type: Spontaneous
  Country: SE (occurrence: SE)
  Receive Date: 20230320
  Receipt Date: 20230320
  Transmission Date: 20230418
  Serious: Yes (Hospitalization, Other)
  Sender: FDA-Public Use
  Company Number: SE-MPA-2023-001760

PATIENT
  Age: 37 Year
  Sex: Female

DRUGS (5)
  1. LAMOTRIGINE [Suspect]
     Active Substance: LAMOTRIGINE
     Indication: Product used for unknown indication
     Dosage: ^UNGEF?R DUBBEL DOS^(ABOUT DOUBLE DOSE)
     Route: 065
     Dates: start: 20230221, end: 20230221
  2. PROMETHAZINE HYDROCHLORIDE\THIOUREA [Suspect]
     Active Substance: PROMETHAZINE HYDROCHLORIDE\THIOUREA
     Indication: Product used for unknown indication
     Dosage: 1 UNK1, 1 TOTAL (UNGEF?R DUBBEL DOS)
     Route: 065
     Dates: start: 20230221, end: 20230221
  3. MIRTAZAPINE [Suspect]
     Active Substance: MIRTAZAPINE
     Indication: Product used for unknown indication
     Dosage: 1 UNK1, 1 TOTAL (UNGEF?R DUBBEL DOS)
     Route: 065
     Dates: start: 20230221, end: 20230221
  4. ACETAMINOPHEN [Suspect]
     Active Substance: ACETAMINOPHEN
     Indication: Product used for unknown indication
     Dosage: 15 GRAM
     Route: 065
     Dates: start: 20230221, end: 20230221
  5. VENLAFAXINE [Suspect]
     Active Substance: VENLAFAXINE HYDROCHLORIDE
     Indication: Product used for unknown indication
     Dosage: ^UNGEF?R DUBBEL DOS^(ABOUT DOUBLE DOSE)
     Route: 065
     Dates: start: 20230221, end: 20230221

REACTIONS (3)
  - Suicidal ideation [Unknown]
  - Liver disorder [Unknown]
  - Intentional overdose [Unknown]

NARRATIVE: CASE EVENT DATE: 20230221
